FAERS Safety Report 20773322 (Version 1)
Quarter: 2022Q2

REPORT INFORMATION
  Report Type: Spontaneous
  Country: US (occurrence: None)
  Receive Date: 20220429
  Receipt Date: 20220429
  Transmission Date: 20220721
  Serious: No
  Sender: FDA-Public Use
  Company Number: None

PATIENT
  Age: 39 Year
  Sex: Female
  Weight: 66.6 kg

DRUGS (8)
  1. PAXLOVID [Suspect]
     Active Substance: NIRMATRELVIR\RITONAVIR
  2. LOSARTAN [Concomitant]
     Active Substance: LOSARTAN
  3. SPIRONOLACTONE [Concomitant]
     Active Substance: SPIRONOLACTONE
  4. VITAMIN D NOS [Concomitant]
     Active Substance: VITAMIN D NOS
  5. CETIRIZINE [Concomitant]
     Active Substance: CETIRIZINE HYDROCHLORIDE
  6. ASPIRIN [Concomitant]
     Active Substance: ASPIRIN
  7. ZINC [Concomitant]
     Active Substance: ZINC
  8. VITAMIN C [Concomitant]
     Active Substance: ASCORBIC ACID

REACTIONS (5)
  - Rhinorrhoea [None]
  - Nasal congestion [None]
  - Rhinalgia [None]
  - Pyrexia [None]
  - SARS-CoV-2 test positive [None]

NARRATIVE: CASE EVENT DATE: 20220427
